FAERS Safety Report 5215313-3 (Version None)
Quarter: 2006Q4

REPORT INFORMATION
  Report Type: 
  Country: None (occurrence: None)
  Receive Date: 20061122
  Receipt Date: 20060103
  Transmission Date: 20070319
  Serious: Yes (Other)
  Sender: FDA-Public Use
  Company Number: 2006002492

PATIENT
  Age: 67 Year
  Sex: Female
  Weight: 76.6579 kg

DRUGS (5)
  1. LIPITOR [Suspect]
     Indication: BLOOD CHOLESTEROL
     Dosage: 20 MG (20 MG, 1 IN 1 D), ORAL
     Route: 048
  2. METROCREAM [Concomitant]
  3. MULTIVITIAMINS (MULTIVITAMINS) [Concomitant]
  4. ASPIRIN [Concomitant]
  5. AVAPRO [Concomitant]

REACTIONS (2)
  - DEAFNESS [None]
  - TINNITUS [None]
